FAERS Safety Report 6497523-0 (Version None)
Quarter: 2009Q4

REPORT INFORMATION
  Report Type: 
  Country: None (occurrence: None)
  Receive Date: 20091215
  Receipt Date: 20091201
  Transmission Date: 20100525
  Serious: Yes (Hospitalization)
  Sender: FDA-Public Use
  Company Number: DE-BAYER-200941030GPV

PATIENT
  Age: 74 Year
  Sex: Female
  Weight: 58 kg

DRUGS (4)
  1. CAMPATH [Suspect]
     Indication: CHRONIC LYMPHOCYTIC LEUKAEMIA
     Route: 058
     Dates: start: 20091005
  2. PEGFILGRASTIM [Suspect]
     Indication: CHRONIC LYMPHOCYTIC LEUKAEMIA
     Route: 058
     Dates: start: 20091118
  3. DEXAMETHASONE TAB [Suspect]
     Indication: CHRONIC LYMPHOCYTIC LEUKAEMIA
     Route: 048
     Dates: start: 20091118, end: 20091121
  4. TAVANIC [Concomitant]
     Indication: INFECTION
     Route: 048

REACTIONS (5)
  - ATRIAL FIBRILLATION [None]
  - NASOPHARYNGITIS [None]
  - PRESYNCOPE [None]
  - PYREXIA [None]
  - URINARY TRACT INFECTION [None]
